FAERS Safety Report 6569231-9 (Version None)
Quarter: 2010Q1

REPORT INFORMATION
  Report Type: 
  Country: None (occurrence: None)
  Receive Date: 20100201
  Receipt Date: 20100201
  Transmission Date: 20100710
  Serious: Yes (Hospitalization)
  Sender: FDA-Public Use
  Company Number: None

PATIENT
  Age: 63 Year
  Sex: Male
  Weight: 90.7194 kg

DRUGS (2)
  1. METOCLOPRAMIDE 10MG ACTAVIS [Suspect]
     Indication: EYE MOVEMENT DISORDER
     Dosage: 10MG 4 PER DAY PO
     Route: 048
     Dates: start: 20090320, end: 20091127
  2. REGLAN [Concomitant]

REACTIONS (1)
  - EYE MOVEMENT DISORDER [None]
